FAERS Safety Report 11792605 (Version 2)
Quarter: 2015Q4

REPORT INFORMATION
  Report Type: Report from Study
  Country: CA (occurrence: CA)
  Receive Date: 20151202
  Receipt Date: 20151207
  Transmission Date: 20160305
  Serious: Yes (Other)
  Sender: FDA-Public Use
  Company Number: CA-AMGEN-CANSL2015126189

PATIENT
  Age: 73 Year
  Sex: Female

DRUGS (5)
  1. PROLIA [Suspect]
     Active Substance: DENOSUMAB
     Indication: OSTEOPOROSIS POSTMENOPAUSAL
     Dosage: 60 MG, Q6MO
     Route: 058
     Dates: start: 20131205
  2. SYNTHROID [Concomitant]
     Active Substance: LEVOTHYROXINE SODIUM
  3. OMEGA 3                            /01333901/ [Concomitant]
     Active Substance: FISH OIL\TOCOPHEROL
  4. VITAMIN D                          /00107901/ [Concomitant]
     Active Substance: ERGOCALCIFEROL
     Dosage: 200 MG, UNK
  5. MULTIVITAMIN                       /00097801/ [Concomitant]
     Active Substance: VITAMINS

REACTIONS (2)
  - Skin cancer [Unknown]
  - Eczema [Recovering/Resolving]

NARRATIVE: CASE EVENT DATE: 2014
